FAERS Safety Report 6957510-2 (Version None)
Quarter: 2010Q3

REPORT INFORMATION
  Report Type: 
  Country: None (occurrence: None)
  Receive Date: 20100816
  Receipt Date: 20100518
  Transmission Date: 20110219
  Serious: Yes (Hospitalization)
  Sender: FDA-Public Use
  Company Number: 2010-00541

PATIENT
  Age: 74 Year
  Sex: Male
  Weight: 65.7716 kg

DRUGS (1)
  1. QUINAPRIL [Suspect]
     Indication: HYPERTENSION
     Dosage: 40 MG (1 D), PER ORAL
     Route: 048
     Dates: start: 20100415, end: 20100517

REACTIONS (1)
  - ANAPHYLACTIC REACTION [None]
